FAERS Safety Report 11444741 (Version 1)
Quarter: 2015Q3

REPORT INFORMATION
  Report Type: Spontaneous
  Country: IT (occurrence: None)
  Receive Date: 20150831
  Receipt Date: 20150831
  Transmission Date: 20151125
  Serious: Yes (Hospitalization, Other)
  Sender: FDA-Public Use
  Company Number: NVST_00068_2015

PATIENT
  Age: 29 Year
  Sex: Female

DRUGS (7)
  1. ARIPIPRAZOLE. [Concomitant]
     Active Substance: ARIPIPRAZOLE
  2. FLUCONAZOLE (FLUCONAZOLE) [Suspect]
     Active Substance: FLUCONAZOLE
     Indication: ORAL CANDIDIASIS
     Route: 048
  3. OLANZAPINE. [Concomitant]
     Active Substance: OLANZAPINE
  4. CLOZAPINE (CLOZAPINE) [Suspect]
     Active Substance: CLOZAPINE
     Indication: PSYCHOTIC DISORDER
     Dosage: TITRATED FROM 25 MG TO 225 MG OVER 16 DAYS ORAL
     Route: 048
  5. DROSPIRENONE W/ETHINYLESTRADIOL (DROSPIRENONE) (NOVAST LABORATORIES) [Suspect]
     Active Substance: DROSPIRENONE\ETHINYL ESTRADIOL
     Indication: PRODUCT USED FOR UNKNOWN INDICATION
     Dosage: 0.03MG/3MG, DAILY ORAL
     Route: 048
  6. HALOPERIDOL. [Concomitant]
     Active Substance: HALOPERIDOL
  7. MICONAZOLE (MICONAZOLE ORAL GEL) [Suspect]
     Active Substance: MICONAZOLE
     Indication: ORAL CANDIDIASIS
     Dosage: 20 MG, BID [2%] ORAL

REACTIONS (22)
  - Antipsychotic drug level increased [None]
  - Electrocardiogram T wave inversion [None]
  - Bundle branch block right [None]
  - Oral candidiasis [None]
  - Catatonia [None]
  - Psychotic disorder [None]
  - Therapeutic response decreased [None]
  - Iatrogenic injury [None]
  - Nausea [None]
  - Treatment noncompliance [None]
  - Eosinophilia [None]
  - Toxicity to various agents [None]
  - Pericarditis [None]
  - Electrocardiogram ST segment depression [None]
  - Heart sounds abnormal [None]
  - Vomiting [None]
  - C-reactive protein increased [None]
  - Hallucination [None]
  - Delusion [None]
  - Drug interaction [None]
  - Pericardial effusion [None]
  - Sinus tachycardia [None]
